FAERS Safety Report 18812197 (Version 1)
Quarter: 2021Q1

REPORT INFORMATION
  Report Type: Spontaneous
  Country: CA (occurrence: CA)
  Receive Date: 20210129
  Receipt Date: 20210129
  Transmission Date: 20210419
  Serious: Yes (Other)
  Sender: FDA-Public Use
  Company Number: CA-BAXTER-2021BAX001624

PATIENT
  Sex: Male

DRUGS (1)
  1. NOREPINEPHRINE BITARTRATE INJECTION, USP [Suspect]
     Active Substance: NOREPINEPHRINE BITARTRATE
     Indication: PRODUCT USED FOR UNKNOWN INDICATION
     Dosage: VIA SPECTRUM IQ INFUSION PUMP (CHUM)
     Route: 065

REACTIONS (2)
  - Blood pressure systolic decreased [Unknown]
  - Device issue [Unknown]

NARRATIVE: CASE EVENT DATE: 20210119
